FAERS Safety Report 7724186-6 (Version None)
Quarter: 2011Q3

REPORT INFORMATION
  Report Type: 
  Country: None (occurrence: None)
  Receive Date: 20110901
  Receipt Date: 20110822
  Transmission Date: 20111222
  Serious: Yes (Hospitalization)
  Sender: FDA-Public Use
  Company Number: US-MPIJNJ-2010-05918

PATIENT
  Sex: Female
  Weight: 63.3 kg

DRUGS (8)
  1. CYCLOPHOSPHAMIDE [Suspect]
     Indication: MULTIPLE MYELOMA
     Dosage: 750 MG/M2, UNK
     Route: 042
     Dates: start: 20100830, end: 20110304
  2. FLUCONAZOLE [Concomitant]
     Dosage: 400 MG, UNK
  3. DOXIL [Suspect]
     Indication: MULTIPLE MYELOMA
     Dosage: 30 MG/M2, CYCLIC
     Route: 042
     Dates: start: 20100830, end: 20110304
  4. LEVAQUIN [Concomitant]
     Dosage: 400 MG, QD
  5. DEXAMETHASONE [Suspect]
     Indication: MULTIPLE MYELOMA
     Dosage: 20 MG, CYCLIC
     Route: 048
     Dates: start: 20100830, end: 20110304
  6. ACYCLOVIR [Concomitant]
     Dosage: 400 MG, UNK
  7. VELCADE [Suspect]
     Indication: MULTIPLE MYELOMA
     Dosage: 1.3 MG/M2, CYCLIC
     Route: 042
     Dates: start: 20100830, end: 20110304
  8. OXYCODONE HCL [Concomitant]
     Dosage: 5 MG, Q4HR
     Route: 048

REACTIONS (1)
  - CELLULITIS [None]
